FAERS Safety Report 17686131 (Version 2)
Quarter: 2020Q3

REPORT INFORMATION
  Report Type: Spontaneous
  Country: DE (occurrence: DE)
  Receive Date: 20200420
  Receipt Date: 20200731
  Transmission Date: 20201102
  Serious: No
  Sender: FDA-Public Use
  Company Number: DE-TOLMAR, INC.-20DE020995

PATIENT
  Sex: Male

DRUGS (2)
  1. ELIGARD [Suspect]
     Active Substance: LEUPROLIDE ACETATE
     Indication: PRODUCT USED FOR UNKNOWN INDICATION
     Dosage: 22.5 MG, UNKNOWN FREQUENCY
     Route: 065
  2. ELIGARD [Suspect]
     Active Substance: LEUPROLIDE ACETATE
     Dosage: 22.5 MG, UNKNOWN FREQUENCY
     Route: 065

REACTIONS (5)
  - Syringe issue [Unknown]
  - Device leakage [Unknown]
  - Product administration error [Unknown]
  - Wrong technique in product usage process [Unknown]
  - Intercepted product administration error [Unknown]
